FAERS Safety Report 4511273-9 (Version None)
Quarter: 2004Q4

REPORT INFORMATION
  Report Type: 
  Country: None (occurrence: None)
  Receive Date: 20041122
  Receipt Date: 20041108
  Transmission Date: 20050328
  Serious: Yes (Other)
  Sender: FDA-Public Use
  Company Number: 2004GB02295

PATIENT
  Sex: Female

DRUGS (1)
  1. SEROQUEL [Suspect]

REACTIONS (3)
  - HAEMODILUTION [None]
  - POST PROCEDURAL COMPLICATION [None]
  - WHITE BLOOD CELL COUNT DECREASED [None]
